FAERS Safety Report 10250415 (Version 1)
Quarter: 2014Q2

REPORT INFORMATION
  Report Type: Spontaneous
  Country: US (occurrence: None)
  Receive Date: 20140619
  Receipt Date: 20140619
  Transmission Date: 20141212
  Serious: No
  Sender: FDA-Public Use
  Company Number: None

PATIENT
  Age: 59 Year
  Sex: Male

DRUGS (4)
  1. HUMIRA [Suspect]
     Indication: CROHN^S DISEASE
     Route: 058
     Dates: start: 20120926
  2. PRISTIQ [Concomitant]
  3. DOXEPIN [Concomitant]
  4. TEMEZEPAM [Concomitant]

REACTIONS (2)
  - Wound infection staphylococcal [None]
  - Ulcer [None]
